FAERS Safety Report 11107108 (Version 1)
Quarter: 2015Q2

REPORT INFORMATION
  Report Type: Spontaneous
  Country: CZ (occurrence: CZ)
  Receive Date: 20150512
  Receipt Date: 20150512
  Transmission Date: 20150821
  Serious: Yes (Life-Threatening, Hospitalization, Other)
  Sender: FDA-Public Use
  Company Number: CZ-GE HEALTHCARE MEDICAL DIAGNOSTICS-VISP-E2B_00000115

PATIENT
  Age: 73 Year
  Sex: Male

DRUGS (2)
  1. VISIPAQUE [Suspect]
     Active Substance: IODIXANOL
     Indication: DIAGNOSTIC PROCEDURE
  2. VISIPAQUE [Suspect]
     Active Substance: IODIXANOL
     Indication: PRODUCT USED FOR UNKNOWN INDICATION
     Route: 042
     Dates: start: 20150414, end: 20150414

REACTIONS (3)
  - Circulatory collapse [Unknown]
  - Bradycardia [Unknown]
  - Hypotension [Unknown]

NARRATIVE: CASE EVENT DATE: 20150414
